FAERS Safety Report 18027770 (Version 2)
Quarter: 2020Q3

REPORT INFORMATION
  Report Type: Spontaneous
  Country: US (occurrence: US)
  Receive Date: 20200716
  Receipt Date: 20200721
  Transmission Date: 20201103
  Serious: No
  Sender: FDA-Public Use
  Company Number: US-BRISTOL-MYERS SQUIBB COMPANY-BMS-2020-055859

PATIENT
  Sex: Male

DRUGS (1)
  1. NULOJIX [Suspect]
     Active Substance: BELATACEPT
     Indication: LUNG TRANSPLANT
     Dosage: 400 MILLIGRAM
     Route: 065

REACTIONS (1)
  - Intentional product use issue [Unknown]
